FAERS Safety Report 8672964 (Version 2)
Quarter: 2013Q1

REPORT INFORMATION
  Report Type: Report from Study
  Country: US (occurrence: US)
  Receive Date: 20120719
  Receipt Date: 20130325
  Transmission Date: 20140127
  Serious: Yes (Hospitalization)
  Sender: FDA-Public Use
  Company Number: US-ROCHE-1088653

PATIENT
  Age: 59 Year
  Sex: Female
  Weight: 132 kg

DRUGS (3)
  1. PEG-INTERFERON ALFA 2A [Suspect]
     Indication: CHRONIC HEPATITIS C
     Dosage: MOST RECENT DOSE OF 180 MCG ON 09/JUL/2012
     Route: 065
     Dates: start: 20120429
  2. RIBAVIRIN [Suspect]
     Indication: CHRONIC HEPATITIS C
     Dosage: MOST RECENT DOSE OF 600 MG ON 09/JUL/2012
     Route: 065
     Dates: start: 20120429
  3. TELAPREVIR [Suspect]
     Indication: CHRONIC HEPATITIS C
     Dosage: MOST RECENT DOSE OF 2250 MG ON 09/JUL/2012
     Route: 065
     Dates: start: 20120429

REACTIONS (1)
  - Asthma [Recovered/Resolved]
